FAERS Safety Report 8957781 (Version 2)
Quarter: 2012Q4

REPORT INFORMATION
  Report Type: 
  Country: JP (occurrence: JP)
  Receive Date: 20121211
  Receipt Date: 20121220
  Transmission Date: 20130627
  Serious: Yes (Hospitalization, Other)
  Sender: FDA-Public Use
  Company Number: JP-GILEAD-2012-0065802

PATIENT
  Age: 40 Year
  Sex: Female

DRUGS (5)
  1. AMBRISENTAN [Suspect]
     Indication: PRODUCT USED FOR UNKNOWN INDICATION
     Route: 048
  2. FLOLAN [Suspect]
     Indication: PRODUCT USED FOR UNKNOWN INDICATION
     Dosage: UNK
     Route: 042
  3. FLOLAN [Suspect]
     Dosage: UNK
     Route: 042
  4. SILDENAFIL CITRATE [Concomitant]
     Route: 048
  5. SILDENAFIL CITRATE [Concomitant]
     Route: 048

REACTIONS (20)
  - Goitre [Unknown]
  - Blood thyroid stimulating hormone abnormal [Unknown]
  - Malaise [Unknown]
  - Oedema [Unknown]
  - Cardiac failure [Recovered/Resolved]
  - Right ventricular failure [Unknown]
  - Dyspnoea [Unknown]
  - Palpitations [Unknown]
  - Nasopharyngitis [Recovered/Resolved]
  - Hyperthyroidism [Unknown]
  - Exophthalmos [Unknown]
  - Brain natriuretic peptide increased [Recovered/Resolved]
  - Echocardiogram abnormal [Unknown]
  - Tri-iodothyronine free abnormal [Unknown]
  - Thyroxine free abnormal [Unknown]
  - Anti-thyroid antibody positive [Unknown]
  - Weight decreased [Unknown]
  - Upper respiratory tract infection [Unknown]
  - Headache [Unknown]
  - Dizziness [Unknown]
